FAERS Safety Report 6418202-1 (Version None)
Quarter: 2009Q4

REPORT INFORMATION
  Report Type: 
  Country: None (occurrence: None)
  Receive Date: 20091028
  Receipt Date: 20091016
  Transmission Date: 20100525
  Serious: Yes (Hospitalization, Other)
  Sender: FDA-Public Use
  Company Number: US-PFIZER INC-2009284380

PATIENT
  Sex: Female
  Weight: 56.689 kg

DRUGS (3)
  1. DILANTIN [Suspect]
     Indication: CONVULSION
     Dosage: UNK
     Route: 048
     Dates: start: 20080101, end: 20081101
  2. LISDEXAMFETAMINE DIMESYLATE [Suspect]
     Indication: ATTENTION DEFICIT/HYPERACTIVITY DISORDER
     Dosage: 30 MG, 1X/DAY
     Route: 048
     Dates: start: 20080201
  3. KEPPRA [Concomitant]
     Indication: CONVULSION
     Dosage: 1000 MG, 1/2 TAB DAILY
     Route: 048
     Dates: start: 20081101

REACTIONS (3)
  - ANTICONVULSANT DRUG LEVEL INCREASED [None]
  - ARACHNOID CYST [None]
  - GRAND MAL CONVULSION [None]
